FAERS Safety Report 23863377 (Version 2)
Quarter: 2024Q2

REPORT INFORMATION
  Report Type: Report from Study
  Country: CA (occurrence: CA)
  Receive Date: 20240516
  Receipt Date: 20240531
  Transmission Date: 20240716
  Serious: No
  Sender: FDA-Public Use
  Company Number: CA-SANDOZ-SDZ2023CA011651

PATIENT
  Sex: Male

DRUGS (1)
  1. HYRIMOZ [Suspect]
     Active Substance: ADALIMUMAB-ADAZ
     Indication: Ankylosing spondylitis
     Dosage: 40 MG S/C EVERY 2 WEEKS;EVERY TWO WEEKS
     Route: 058
     Dates: start: 20220215

REACTIONS (2)
  - Injection site pain [Unknown]
  - Device difficult to use [Unknown]
